FAERS Safety Report 16050029 (Version 1)
Quarter: 2019Q1

REPORT INFORMATION
  Report Type: Report from Study
  Country: IT (occurrence: IT)
  Receive Date: 20190308
  Receipt Date: 20190308
  Transmission Date: 20190418
  Serious: Yes (Other)
  Sender: FDA-Public Use
  Company Number: IT-ACCORD-111406

PATIENT
  Age: 66 Year
  Sex: Male

DRUGS (5)
  1. GANFORT [Concomitant]
     Active Substance: BIMATOPROST\TIMOLOL
  2. FENTANYL. [Concomitant]
     Active Substance: FENTANYL
  3. PANTORC [Concomitant]
     Active Substance: PANTOPRAZOLE SODIUM
  4. ORAMORPH [Concomitant]
     Active Substance: MORPHINE SULFATE
  5. CISPLATIN ACCORD [Suspect]
     Active Substance: CISPLATIN
     Indication: OROPHARYNGEAL CANCER
     Route: 042
     Dates: start: 20180802, end: 20180913

REACTIONS (3)
  - Mucosal inflammation [Not Recovered/Not Resolved]
  - Palate injury [Not Recovered/Not Resolved]
  - Erythema [Not Recovered/Not Resolved]

NARRATIVE: CASE EVENT DATE: 20180903
